FAERS Safety Report 24668371 (Version 1)
Quarter: 2024Q4

REPORT INFORMATION
  Report Type: Spontaneous
  Country: GB (occurrence: GB)
  Receive Date: 20241127
  Receipt Date: 20241127
  Transmission Date: 20250115
  Serious: Yes (Other)
  Sender: ROCHE
  Company Number: GB-ROCHE-10000136617

PATIENT
  Age: 60 Year
  Sex: Female

DRUGS (2)
  1. CELLCEPT [Suspect]
     Active Substance: MYCOPHENOLATE MOFETIL
     Indication: Product used for unknown indication
     Route: 048
  2. CELLCEPT [Suspect]
     Active Substance: MYCOPHENOLATE MOFETIL
     Route: 048

REACTIONS (7)
  - Nausea [Unknown]
  - Abdominal distension [Unknown]
  - Flushing [Unknown]
  - Skin infection [Unknown]
  - Swelling [Unknown]
  - Anaphylactic reaction [Unknown]
  - Urticaria [Unknown]
